FAERS Safety Report 15969414 (Version 4)
Quarter: 2022Q1

REPORT INFORMATION
  Report Type: Spontaneous
  Country: US (occurrence: None)
  Receive Date: 20190215
  Receipt Date: 20220324
  Transmission Date: 20220423
  Serious: Yes (Other)
  Sender: FDA-Public Use
  Company Number: 2018SF21057

PATIENT
  Age: 20650 Day
  Sex: Female
  Weight: 98.9 kg

DRUGS (42)
  1. NEXIUM [Suspect]
     Active Substance: ESOMEPRAZOLE MAGNESIUM
     Indication: Gastrooesophageal reflux disease
     Route: 048
     Dates: start: 20010320
  2. NEXIUM [Suspect]
     Active Substance: ESOMEPRAZOLE MAGNESIUM
     Indication: Gastrooesophageal reflux disease
     Route: 048
     Dates: start: 20100123
  3. NEXIUM [Suspect]
     Active Substance: ESOMEPRAZOLE MAGNESIUM
     Indication: Gastrooesophageal reflux disease
     Route: 048
     Dates: start: 2001, end: 2001
  4. NEXIUM 24HR [Suspect]
     Active Substance: ESOMEPRAZOLE MAGNESIUM
     Route: 048
  5. PRILOSEC [Suspect]
     Active Substance: OMEPRAZOLE MAGNESIUM
     Indication: Gastrooesophageal reflux disease
     Route: 048
     Dates: start: 1990, end: 2019
  6. PRILOSEC OTC [Suspect]
     Active Substance: OMEPRAZOLE MAGNESIUM
     Indication: Gastrooesophageal reflux disease
     Route: 048
     Dates: start: 2003, end: 2019
  7. DEXILANT [Suspect]
     Active Substance: DEXLANSOPRAZOLE
     Route: 065
  8. DEXILANT [Suspect]
     Active Substance: DEXLANSOPRAZOLE
     Dosage: FOR 8 WEEKS
     Route: 048
     Dates: start: 20130419
  9. PREVACID [Suspect]
     Active Substance: LANSOPRAZOLE
     Route: 065
  10. PREVACID 24 HR [Suspect]
     Active Substance: LANSOPRAZOLE
     Route: 065
  11. PROTONIX [Suspect]
     Active Substance: PANTOPRAZOLE SODIUM
     Route: 065
  12. LEVOTHYROXINE [Concomitant]
     Active Substance: LEVOTHYROXINE
  13. AMBIEN [Concomitant]
     Active Substance: ZOLPIDEM TARTRATE
  14. METOPROLOL SUCCINATE [Concomitant]
     Active Substance: METOPROLOL SUCCINATE
  15. FEXOFENADINE [Concomitant]
     Active Substance: FEXOFENADINE HYDROCHLORIDE
  16. CLINDAMYCIN HYDROCHLORIDE [Concomitant]
     Active Substance: CLINDAMYCIN HYDROCHLORIDE
  17. CHLORHEXIDINE [Concomitant]
     Active Substance: CHLORHEXIDINE
  18. CYANOCOBALAMIN [Concomitant]
     Active Substance: CYANOCOBALAMIN
  19. ISOSORBIDE DINITRATE [Concomitant]
     Active Substance: ISOSORBIDE DINITRATE
  20. VITAMIN D [Concomitant]
     Active Substance: VITAMIN D NOS
  21. MONTELUKAST [Concomitant]
     Active Substance: MONTELUKAST SODIUM
  22. LISINOPRIL [Concomitant]
     Active Substance: LISINOPRIL
  23. IRBESARTAN [Concomitant]
     Active Substance: IRBESARTAN
  24. CYCLOBENZAPRINE [Concomitant]
     Active Substance: CYCLOBENZAPRINE
  25. ALBUTEROL [Concomitant]
     Active Substance: ALBUTEROL
  26. SIMVASTATIN [Concomitant]
     Active Substance: SIMVASTATIN
  27. ZOLPIDEM [Concomitant]
     Active Substance: ZOLPIDEM TARTRATE
  28. VENLAFAXINE [Concomitant]
     Active Substance: VENLAFAXINE HYDROCHLORIDE
  29. CARVEDILOL [Concomitant]
     Active Substance: CARVEDILOL
  30. VALSARTAN [Concomitant]
     Active Substance: VALSARTAN
  31. PROAIR HFA [Concomitant]
     Active Substance: ALBUTEROL SULFATE
  32. TOPROL XL [Concomitant]
     Active Substance: METOPROLOL SUCCINATE
  33. BACITRACIN [Concomitant]
     Active Substance: BACITRACIN
  34. ISOSORBIDE [Concomitant]
     Active Substance: ISOSORBIDE
  35. OXYBUTYNIN [Concomitant]
     Active Substance: OXYBUTYNIN
  36. TOPIRAMATE [Concomitant]
     Active Substance: TOPIRAMATE
  37. CLONAZEPAM [Concomitant]
     Active Substance: CLONAZEPAM
  38. DULOXETINE [Concomitant]
     Active Substance: DULOXETINE
  39. LEVOCETIRIZINE [Concomitant]
     Active Substance: LEVOCETIRIZINE
  40. SPIRONOLACTONE [Concomitant]
     Active Substance: SPIRONOLACTONE
  41. NITROFURANTOIN [Concomitant]
     Active Substance: NITROFURANTOIN
  42. NORTRIPTYLINE [Concomitant]
     Active Substance: NORTRIPTYLINE

REACTIONS (3)
  - Chronic kidney disease [Unknown]
  - Renal injury [Unknown]
  - Renal failure [Unknown]

NARRATIVE: CASE EVENT DATE: 20170523
